FAERS Safety Report 10529173 (Version 1)
Quarter: 2014Q4

REPORT INFORMATION
  Report Type: Spontaneous
  Country: GB (occurrence: GB)
  Receive Date: 20141020
  Receipt Date: 20141020
  Transmission Date: 20150528
  Serious: Yes (Disabling, Other)
  Sender: FDA-Public Use
  Company Number: GB-GILEAD-2014-0119009

PATIENT
  Age: 25 Year
  Sex: Female
  Weight: 103 kg

DRUGS (3)
  1. FOLIC ACID. [Concomitant]
     Active Substance: FOLIC ACID
  2. IBUPROFEN. [Concomitant]
     Active Substance: IBUPROFEN
     Dosage: 400 MG, UNK
  3. EVIPLERA [Suspect]
     Active Substance: EMTRICITABINE\RILPIVIRINE\TENOFOVIR DISOPROXIL FUMARATE
     Indication: HIV ANTIBODY POSITIVE
     Dosage: 1 DF, QD
     Route: 048
     Dates: start: 20130904, end: 20140224

REACTIONS (3)
  - Arthralgia [Recovered/Resolved]
  - Tenosynovitis [Recovered/Resolved]
  - Polyarthritis [Recovered/Resolved]

NARRATIVE: CASE EVENT DATE: 20130904
